FAERS Safety Report 18788271 (Version 1)
Quarter: 2021Q1

REPORT INFORMATION
  Report Type: Spontaneous
  Country: US (occurrence: US)
  Receive Date: 20210126
  Receipt Date: 20210126
  Transmission Date: 20210419
  Serious: No
  Sender: FDA-Public Use
  Company Number: None

PATIENT
  Age: 37 Year
  Sex: Female
  Weight: 81 kg

DRUGS (3)
  1. IRON [Concomitant]
     Active Substance: IRON
  2. ORILISSA [Suspect]
     Active Substance: ELAGOLIX SODIUM
     Indication: ENDOMETRIOSIS
     Dosage: ?          QUANTITY:1 TABLET(S);?
     Route: 048
     Dates: start: 20210109
  3. ORILISSA [Suspect]
     Active Substance: ELAGOLIX SODIUM
     Indication: UTERINE LEIOMYOMA
     Dosage: ?          QUANTITY:1 TABLET(S);?
     Route: 048
     Dates: start: 20210109

REACTIONS (2)
  - Hot flush [None]
  - Insomnia [None]

NARRATIVE: CASE EVENT DATE: 20210126
